FAERS Safety Report 10163321 (Version 1)
Quarter: 2014Q2

REPORT INFORMATION
  Report Type: Spontaneous
  Country: BR (occurrence: BR)
  Receive Date: 20140509
  Receipt Date: 20140509
  Transmission Date: 20141212
  Serious: Yes (Other)
  Sender: FDA-Public Use
  Company Number: BR-TEVA-479452ISR

PATIENT
  Age: 62 Year
  Sex: Female
  Weight: 60 kg

DRUGS (2)
  1. TEVAFOLIN [Suspect]
     Indication: RECTAL CANCER
     Route: 042
     Dates: start: 20130902
  2. TEVAFOLIN [Suspect]
     Indication: LUNG NEOPLASM MALIGNANT

REACTIONS (3)
  - Hypertension [Recovered/Resolved]
  - Heart rate increased [Recovered/Resolved]
  - Tremor [Recovered/Resolved]
